FAERS Safety Report 21180071 (Version 1)
Quarter: 2022Q3

REPORT INFORMATION
  Report Type: Spontaneous
  Country: US (occurrence: None)
  Receive Date: 20220805
  Receipt Date: 20220805
  Transmission Date: 20221026
  Serious: No
  Sender: FDA-Public Use
  Company Number: None

PATIENT
  Age: 67 Year
  Sex: Female
  Weight: 79.02 kg

DRUGS (6)
  1. KISQALI [Suspect]
     Active Substance: RIBOCICLIB
     Indication: Breast cancer female
     Dosage: FREQUENCY : AS DIRECTED;?
     Route: 048
  2. LETROZOLE [Suspect]
     Active Substance: LETROZOLE
     Indication: Breast cancer female
     Dosage: OTHER QUANTITY : 2.5MG;?FREQUENCY : DAILY;?
     Route: 048
  3. CALCIUM [Concomitant]
     Active Substance: CALCIUM
  4. IBUPROFEN [Concomitant]
     Active Substance: IBUPROFEN
  5. LORAZEPAM [Concomitant]
     Active Substance: LORAZEPAM
  6. VITAMIN D [Concomitant]
     Active Substance: VITAMIN D NOS

REACTIONS (1)
  - Disease progression [None]
